FAERS Safety Report 12471878 (Version 2)
Quarter: 2016Q2

REPORT INFORMATION
  Report Type: Spontaneous
  Country: US (occurrence: US)
  Receive Date: 20160616
  Receipt Date: 20160620
  Transmission Date: 20160815
  Serious: Yes (Hospitalization)
  Sender: FDA-Public Use
  Company Number: US-BRACCO-013626

PATIENT
  Age: 65 Year
  Sex: Female
  Weight: 93 kg

DRUGS (2)
  1. ISOVUE 300 [Suspect]
     Active Substance: IOPAMIDOL
     Indication: COMPUTERISED TOMOGRAM
     Route: 042
     Dates: start: 20160610, end: 20160610
  2. DECADRON [Concomitant]
     Active Substance: DEXAMETHASONE
     Route: 042
     Dates: start: 20160610, end: 20160610

REACTIONS (1)
  - Epiglottitis [Recovered/Resolved]

NARRATIVE: CASE EVENT DATE: 20160610
